FAERS Safety Report 8377811-3 (Version None)
Quarter: 2012Q2

REPORT INFORMATION
  Report Type: 
  Country: None (occurrence: None)
  Receive Date: 20120522
  Receipt Date: 20120510
  Transmission Date: 20120825
  Serious: Yes (Death)
  Sender: FDA-Public Use
  Company Number: ES-JNJFOC-20110101494

PATIENT
  Age: 49 Year
  Sex: Male

DRUGS (2)
  1. REMICADE [Suspect]
     Route: 042
     Dates: start: 20070122
  2. REMICADE [Suspect]
     Indication: PSORIASIS
     Dosage: 22ND DOSE
     Route: 042
     Dates: start: 20100215

REACTIONS (1)
  - COMPLETED SUICIDE [None]
